FAERS Safety Report 6057883-1 (Version None)
Quarter: 2009Q1

REPORT INFORMATION
  Report Type: 
  Country: None (occurrence: None)
  Receive Date: 20090126
  Receipt Date: 20090113
  Transmission Date: 20090719
  Serious: Yes (Death, Other)
  Sender: FDA-Public Use
  Company Number: 56022

PATIENT
  Age: 81 Year
  Sex: Female
  Weight: 86 kg

DRUGS (1)
  1. LEUCOVORIN CALCIUM [Suspect]
     Indication: COLORECTAL CANCER
     Dosage: 400MG/M2; IV
     Route: 042
     Dates: start: 20080305, end: 20081231

REACTIONS (9)
  - ARRHYTHMIA [None]
  - BLOOD PRESSURE SYSTOLIC INCREASED [None]
  - CARDIAC MURMUR [None]
  - CONSTIPATION [None]
  - DIARRHOEA [None]
  - HYPOTENSION [None]
  - LOSS OF CONSCIOUSNESS [None]
  - MUSCLE SPASMS [None]
  - SYNCOPE [None]
